FAERS Safety Report 18513276 (Version 1)
Quarter: 2020Q4

REPORT INFORMATION
  Report Type: Spontaneous
  Country: JP (occurrence: JP)
  Receive Date: 20201118
  Receipt Date: 20201118
  Transmission Date: 20210114
  Serious: Yes (Other)
  Sender: FDA-Public Use
  Company Number: JP-ROCHE-2715947

PATIENT
  Age: 9 Decade

DRUGS (1)
  1. GAZYVA [Suspect]
     Active Substance: OBINUTUZUMAB
     Indication: B-CELL LYMPHOMA
     Route: 041

REACTIONS (1)
  - Cytomegalovirus enterocolitis [Not Recovered/Not Resolved]

NARRATIVE: CASE EVENT DATE: 20201111
